FAERS Safety Report 20331799 (Version 1)
Quarter: 2022Q1

REPORT INFORMATION
  Report Type: Report from Study
  Country: KR (occurrence: KR)
  Receive Date: 20220113
  Receipt Date: 20220113
  Transmission Date: 20220423
  Serious: Yes (Death, Other)
  Sender: FDA-Public Use
  Company Number: KR-BRISTOL-MYERS SQUIBB COMPANY-BMS-2022-004131

PATIENT
  Age: 35 Year
  Sex: Female

DRUGS (1)
  1. IPILIMUMAB [Suspect]
     Active Substance: IPILIMUMAB
     Indication: Osteosarcoma
     Dosage: UNK MG/ML ONCE
     Route: 042
     Dates: start: 20210419, end: 20210419

REACTIONS (2)
  - Death [Fatal]
  - Intentional product use issue [Unknown]
